FAERS Safety Report 8507711-7 (Version None)
Quarter: 2012Q2

REPORT INFORMATION
  Report Type: 
  Country: None (occurrence: None)
  Receive Date: 20120405
  Receipt Date: 20091002
  Transmission Date: 20120825
  Serious: Yes (Hospitalization)
  Sender: FDA-Public Use
  Company Number: PHEH2009US08723

PATIENT
  Age: 66 Year
  Sex: Female
  Weight: 65.8 kg

DRUGS (8)
  1. PRILOSEC [Concomitant]
  2. LEVOTHYROXINE SODIUM [Concomitant]
  3. HYDROCHLOROTHIAZIDE [Concomitant]
  4. RECLAST [Suspect]
     Indication: OSTEOPOROSIS
     Dosage: 5 MG, ONCE/SINGLE, INFUSION
     Dates: start: 20090728, end: 20090728
  5. ARAVA [Concomitant]
  6. MOTRIN [Concomitant]
  7. CRESTOR [Concomitant]
  8. LISINOPRIL [Concomitant]

REACTIONS (13)
  - RETCHING [None]
  - VOMITING [None]
  - PYREXIA [None]
  - PAIN IN EXTREMITY [None]
  - PAIN [None]
  - MYALGIA [None]
  - RENAL FAILURE [None]
  - SKIN WARM [None]
  - CHILLS [None]
  - DIALYSIS [None]
  - ARTHRITIS [None]
  - OEDEMA PERIPHERAL [None]
  - ERYTHEMA [None]
